FAERS Safety Report 10148715 (Version 3)
Quarter: 2014Q2

REPORT INFORMATION
  Report Type: Report from Study
  Country: AU (occurrence: AU)
  Receive Date: 20140501
  Receipt Date: 20140609
  Transmission Date: 20141212
  Serious: Yes (Hospitalization)
  Sender: FDA-Public Use
  Company Number: AU-EXELIXIS-XL18414004232

PATIENT
  Age: 69 Year
  Sex: Male
  Weight: 107 kg

DRUGS (3)
  1. XL184 [Suspect]
     Indication: PROSTATE CANCER
     Dosage: 60 MG, QD
     Route: 048
     Dates: start: 20140313, end: 20140416
  2. XL184 [Suspect]
     Indication: PROSTATE CANCER
     Dosage: 12 MG/M2, Q3WEEKS
     Route: 042
     Dates: start: 20140313, end: 20140403
  3. XL184 [Suspect]
     Indication: PROSTATE CANCER
     Dosage: 5 MG, BID
     Route: 048
     Dates: start: 20140313, end: 20140416

REACTIONS (1)
  - Syncope [Recovered/Resolved]
